FAERS Safety Report 7925946 (Version 4)
Quarter: 2014Q2

REPORT INFORMATION
  Report Type: Spontaneous
  Country: US (occurrence: US)
  Receive Date: 20110502
  Receipt Date: 20140605
  Transmission Date: 20141212
  Serious: No
  Sender: FDA-Public Use
  Company Number: US-ASTRAZENECA-2010SE51323

PATIENT
  Age: 61 Year
  Sex: Female

DRUGS (28)
  1. NEXIUM [Suspect]
     Indication: GASTROOESOPHAGEAL REFLUX DISEASE
     Route: 048
  2. NEXIUM [Suspect]
     Indication: OESOPHAGEAL SPASM
     Route: 048
  3. NEXIUM [Suspect]
     Indication: GASTROOESOPHAGEAL REFLUX DISEASE
     Route: 048
  4. NEXIUM [Suspect]
     Indication: GASTROOESOPHAGEAL REFLUX DISEASE
     Route: 048
  5. NEXIUM [Suspect]
     Indication: OESOPHAGEAL SPASM
     Route: 048
  6. NEXIUM [Suspect]
     Indication: GASTROOESOPHAGEAL REFLUX DISEASE
     Route: 048
  7. NEXIUM [Suspect]
     Indication: GASTROOESOPHAGEAL REFLUX DISEASE
     Route: 048
  8. NEXIUM [Suspect]
     Indication: OESOPHAGEAL SPASM
     Route: 048
  9. NEXIUM [Suspect]
     Indication: GASTROOESOPHAGEAL REFLUX DISEASE
     Route: 048
  10. NEXIUM [Suspect]
     Indication: GASTROOESOPHAGEAL REFLUX DISEASE
     Route: 048
  11. NEXIUM [Suspect]
     Indication: OESOPHAGEAL SPASM
     Route: 048
  12. NEXIUM [Suspect]
     Indication: GASTROOESOPHAGEAL REFLUX DISEASE
     Route: 048
  13. NEXIUM [Suspect]
     Indication: GASTROOESOPHAGEAL REFLUX DISEASE
     Route: 048
  14. NEXIUM [Suspect]
     Indication: OESOPHAGEAL SPASM
     Route: 048
  15. NEXIUM [Suspect]
     Indication: GASTROOESOPHAGEAL REFLUX DISEASE
     Route: 048
  16. PRILOSEC OTC [Suspect]
     Indication: GASTROOESOPHAGEAL REFLUX DISEASE
     Route: 048
  17. OTC MEDICATIONS [Concomitant]
  18. CALCIUM [Concomitant]
  19. XANAX [Concomitant]
  20. PREMARIN [Concomitant]
  21. SYNTHROID [Concomitant]
  22. MULIVITAMIN [Concomitant]
  23. PROBIOTICS [Concomitant]
  24. ALBUTEROL [Concomitant]
     Indication: ASTHMA
  25. PROVENTIL [Concomitant]
     Indication: ASTHMA
  26. PEPCID [Concomitant]
  27. PANTROPAZOLE [Concomitant]
  28. ZANTAC [Concomitant]

REACTIONS (9)
  - Oesophageal spasm [Unknown]
  - Gastrooesophageal reflux disease [Unknown]
  - Stress [Unknown]
  - Asthma [Not Recovered/Not Resolved]
  - Oesophageal pain [Unknown]
  - Drug dose omission [Not Recovered/Not Resolved]
  - Intentional product misuse [Unknown]
  - Off label use [Not Recovered/Not Resolved]
  - Drug ineffective [Recovered/Resolved]
